FAERS Safety Report 23351861 (Version 2)
Quarter: 2024Q1

REPORT INFORMATION
  Report Type: Spontaneous
  Country: CN (occurrence: CN)
  Receive Date: 20231229
  Receipt Date: 20240108
  Transmission Date: 20240410
  Serious: Yes (Other)
  Sender: FDA-Public Use
  Company Number: CN-SA-2023SA403539

PATIENT
  Age: 61 Year
  Sex: Male
  Weight: 42 kg

DRUGS (15)
  1. OXALIPLATIN [Suspect]
     Active Substance: OXALIPLATIN
     Indication: Gastric neuroendocrine carcinoma
     Dosage: 100 MG, QCY
     Dates: start: 2021, end: 2021
  2. OXALIPLATIN [Suspect]
     Active Substance: OXALIPLATIN
     Indication: Metastases to liver
     Dosage: 175 MG, QCY
     Dates: start: 2021, end: 2021
  3. OXALIPLATIN [Suspect]
     Active Substance: OXALIPLATIN
     Indication: Metastases to lymph nodes
     Dosage: FOR 1 CYCLE 200MG 1CYCLICAL
     Dates: start: 20220419, end: 20220825
  4. OXALIPLATIN [Suspect]
     Active Substance: OXALIPLATIN
     Dosage: FOR 5 CYCLES 175MG 1CYCLICAL
     Dates: start: 20220419, end: 20220825
  5. LEUCOVORIN CALCIUM [Suspect]
     Active Substance: LEUCOVORIN CALCIUM
     Indication: Gastric neuroendocrine carcinoma
     Dosage: 250 MG, QCY
     Dates: start: 2021, end: 2021
  6. LEUCOVORIN CALCIUM [Suspect]
     Active Substance: LEUCOVORIN CALCIUM
     Indication: Metastases to liver
  7. LEUCOVORIN CALCIUM [Suspect]
     Active Substance: LEUCOVORIN CALCIUM
     Indication: Metastases to lymph nodes
  8. FLUOROURACIL [Suspect]
     Active Substance: FLUOROURACIL
     Indication: Gastric neuroendocrine carcinoma
     Dosage: 3.75 G, QCY
     Dates: start: 2021, end: 2021
  9. FLUOROURACIL [Suspect]
     Active Substance: FLUOROURACIL
     Indication: Metastases to liver
  10. FLUOROURACIL [Suspect]
     Active Substance: FLUOROURACIL
     Indication: Metastases to lymph nodes
  11. CAPECITABINE [Suspect]
     Active Substance: CAPECITABINE
     Indication: Gastric neuroendocrine carcinoma
     Dosage: 35 G, QCY
     Dates: start: 2021, end: 2021
  12. CAPECITABINE [Suspect]
     Active Substance: CAPECITABINE
     Indication: Metastases to liver
     Dosage: 35 G, QCY
     Dates: start: 20211025, end: 20220329
  13. CAPECITABINE [Suspect]
     Active Substance: CAPECITABINE
     Indication: Metastases to lymph nodes
     Dosage: 42 G, QCY
     Dates: start: 20220419, end: 20220825
  14. CAPECITABINE [Suspect]
     Active Substance: CAPECITABINE
     Dosage: 35 G, QCY
     Dates: start: 20220419, end: 20220825
  15. SINTILIMAB [Suspect]
     Active Substance: SINTILIMAB
     Indication: Gastric cancer stage IV
     Dosage: FOR 7 CYCLES 200MG 1CYCLICAL
     Dates: start: 20220419, end: 20220825

REACTIONS (2)
  - Myelosuppression [Unknown]
  - Gastrointestinal disorder [Unknown]

NARRATIVE: CASE EVENT DATE: 20220101
